FAERS Safety Report 5907058-9 (Version None)
Quarter: 2008Q4

REPORT INFORMATION
  Report Type: 
  Country: None (occurrence: None)
  Receive Date: 20081002
  Receipt Date: 20081002
  Transmission Date: 20090506
  Serious: Yes (Life-Threatening)
  Sender: FDA-Public Use
  Company Number: None

PATIENT
  Age: 65 Year
  Sex: Female
  Weight: 43.5453 kg

DRUGS (1)
  1. PRAVACHOL [Suspect]
     Indication: BLOOD CHOLESTEROL INCREASED
     Dosage: 1TABLET ONCE A DAY
     Dates: start: 20001001, end: 20041001

REACTIONS (4)
  - CACHEXIA [None]
  - HYPOTONIA [None]
  - MYALGIA [None]
  - WEIGHT DECREASED [None]
